FAERS Safety Report 5680671-2 (Version None)
Quarter: 2008Q1

REPORT INFORMATION
  Report Type: 
  Country: None (occurrence: None)
  Receive Date: 20080326
  Receipt Date: 20070924
  Transmission Date: 20080703
  Serious: No
  Sender: FDA-Public Use
  Company Number: US-BAUSCH-2007BL003464

PATIENT
  Age: 67 Year
  Sex: Female

DRUGS (2)
  1. LOTEMAX [Suspect]
     Indication: KERATITIS
     Route: 047
     Dates: start: 20070601, end: 20070921
  2. RESTASIS [Concomitant]
     Indication: KERATOCONJUNCTIVITIS SICCA
     Dates: start: 20070601

REACTIONS (1)
  - BLOOD GLUCOSE INCREASED [None]
